FAERS Safety Report 12968259 (Version 1)
Quarter: 2016Q4

REPORT INFORMATION
  Report Type: Spontaneous
  Country: US (occurrence: US)
  Receive Date: 20161123
  Receipt Date: 20161123
  Transmission Date: 20170207
  Serious: No
  Sender: FDA-Public Use
  Company Number: US-APOTEX-2016AP007423

PATIENT
  Sex: Female

DRUGS (1)
  1. ACYCLOVIR. [Suspect]
     Active Substance: ACYCLOVIR
     Indication: ANTIVIRAL PROPHYLAXIS
     Dosage: 1 DF (TABLET), BID
     Route: 065
     Dates: start: 201601

REACTIONS (6)
  - Pain [Recovered/Resolved]
  - Influenza [Recovered/Resolved]
  - Urticaria [Recovered/Resolved]
  - Drug ineffective [Recovered/Resolved]
  - Product taste abnormal [Recovered/Resolved]
  - Product solubility abnormal [Recovered/Resolved]
